FAERS Safety Report 17444668 (Version 1)
Quarter: 2020Q1

REPORT INFORMATION
  Report Type: Spontaneous
  Country: FR (occurrence: FR)
  Receive Date: 20200221
  Receipt Date: 20200221
  Transmission Date: 20200409
  Serious: Yes (Hospitalization)
  Sender: FDA-Public Use
  Company Number: FR-TEVA-2020-FR-1189197

PATIENT
  Age: 35 Year
  Sex: Female
  Weight: 46 kg

DRUGS (16)
  1. MEROPENEM ANHYDRE [Suspect]
     Active Substance: MEROPENEM
     Indication: PROPHYLAXIS
     Dosage: 3G
     Route: 042
     Dates: start: 20191204, end: 20191207
  2. SKENAN [Concomitant]
     Active Substance: MORPHINE SULFATE
     Route: 048
     Dates: start: 20191203, end: 20191216
  3. TAZOBACTAM [Suspect]
     Active Substance: TAZOBACTAM
     Indication: PROPHYLAXIS
     Dosage: SEE COMMENT
     Route: 042
     Dates: start: 20191113, end: 20191204
  4. DAPTOMYCINE [Concomitant]
     Active Substance: DAPTOMYCIN
     Route: 042
     Dates: start: 20191212, end: 20191216
  5. VANCOMYCIN [Suspect]
     Active Substance: VANCOMYCIN
     Indication: PROPHYLAXIS
     Dosage: SEE COMMENT
     Route: 042
     Dates: start: 20191204, end: 20191207
  6. CIPROFLOXACINE [Concomitant]
     Active Substance: CIPROFLOXACIN
     Route: 048
     Dates: start: 20191118, end: 20191204
  7. PIPERACILLINE BASE [Suspect]
     Active Substance: PIPERACILLIN SODIUM
     Indication: PROPHYLAXIS
     Dosage: SEE COMMENT
     Route: 042
     Dates: start: 20191113, end: 20191204
  8. PARACETAMOL [Concomitant]
     Active Substance: ACETAMINOPHEN
     Dosage: 3G
     Route: 048
     Dates: start: 201911, end: 20191216
  9. MOVICOL [Concomitant]
     Active Substance: POLYETHYLENE GLYCOL 3350\POTASSIUM CHLORIDE\SODIUM BICARBONATE\SODIUM CHLORIDE
     Route: 048
     Dates: start: 201911, end: 20191216
  10. ACIDE FOLIQUE [Concomitant]
     Active Substance: FOLIC ACID
     Route: 048
     Dates: start: 201911, end: 20191216
  11. PREGABALINE [Concomitant]
     Active Substance: PREGABALIN
     Route: 048
     Dates: start: 20191128, end: 20191212
  12. LAROXYL [Concomitant]
     Active Substance: AMITRIPTYLINE HYDROCHLORIDE
     Dosage: VOIR COMMENTAIRE
     Route: 048
     Dates: start: 20191128, end: 20191214
  13. HYDROXYZINE (CHLORHYDRATE D^) [Concomitant]
     Active Substance: HYDROXYZINE HYDROCHLORIDE
     Route: 048
     Dates: start: 20191118, end: 20191216
  14. KETOPROFENE [Concomitant]
     Active Substance: KETOPROFEN
     Dosage: 2  AMPOULES PAR JOUR
     Route: 011
     Dates: start: 20191129, end: 20191202
  15. LOVENOX [Concomitant]
     Active Substance: ENOXAPARIN SODIUM
     Route: 058
     Dates: start: 20191129, end: 20191216
  16. CETIRIZINE (DICHLORHYDRATE DE) [Concomitant]
     Active Substance: CETIRIZINE HYDROCHLORIDE
     Route: 048
     Dates: start: 201911, end: 20191216

REACTIONS (4)
  - Leukopenia [Recovered/Resolved]
  - Pyrexia [Recovered/Resolved]
  - Thrombocytopenia [Recovered/Resolved]
  - Dermatitis exfoliative generalised [Recovered/Resolved]

NARRATIVE: CASE EVENT DATE: 20191204
